FAERS Safety Report 7818276-7 (Version None)
Quarter: 2011Q4

REPORT INFORMATION
  Report Type: 
  Country: None (occurrence: None)
  Receive Date: 20111017
  Receipt Date: 20111012
  Transmission Date: 20120403
  Serious: Yes (Other)
  Sender: FDA-Public Use
  Company Number: CA-ABBOTT-11P-028-0836725-00

PATIENT
  Age: 28 Year
  Sex: Female
  Weight: 63 kg

DRUGS (4)
  1. KALETRA [Suspect]
     Route: 048
  2. KALETRA [Suspect]
     Indication: HIV TEST POSITIVE
     Dosage: 100MG/400MG BID
     Route: 048
     Dates: start: 20100525, end: 20101116
  3. ABACAVIR SULFATE AND LAMIVUDINE [Suspect]
     Route: 048
  4. ABACAVIR SULFATE AND LAMIVUDINE [Suspect]
     Indication: HIV TEST POSITIVE
     Dosage: 600MG/300MG
     Route: 048
     Dates: start: 20100908, end: 20101116

REACTIONS (1)
  - BLOOD ALKALINE PHOSPHATASE INCREASED [None]
